FAERS Safety Report 11024801 (Version 1)
Quarter: 2015Q2

REPORT INFORMATION
  Report Type: Report from Study
  Country: FR (occurrence: FR)
  Receive Date: 20150414
  Receipt Date: 20150414
  Transmission Date: 20150821
  Serious: Yes (Hospitalization, Other)
  Sender: FDA-Public Use
  Company Number: FR-SHIRE-FR201502975

PATIENT
  Age: 16 Year
  Sex: Male

DRUGS (3)
  1. IDURSULFASE [Suspect]
     Active Substance: IDURSULFASE
     Indication: MUCOPOLYSACCHARIDOSIS II
     Dosage: 1.0 MG/KG, 1X/WEEK
     Route: 041
     Dates: start: 20100210
  2. IDURSULFASE [Suspect]
     Active Substance: IDURSULFASE
     Dosage: 0.56 MG/KG, 1X/WEEK
     Route: 041
     Dates: start: 20061228
  3. IDURSULFASE [Suspect]
     Active Substance: IDURSULFASE
     Dosage: 0.58 MG/KG, 1X/WEEK
     Route: 041
     Dates: start: 20070104

REACTIONS (3)
  - Sepsis [Unknown]
  - Endocarditis [Unknown]
  - Intervertebral discitis [Unknown]

NARRATIVE: CASE EVENT DATE: 20150324
